FAERS Safety Report 5387684-9 (Version None)
Quarter: 2007Q3

REPORT INFORMATION
  Report Type: 
  Country: None (occurrence: None)
  Receive Date: 20070716
  Receipt Date: 20070710
  Transmission Date: 20080115
  Serious: Yes (Disabling)
  Sender: FDA-Public Use
  Company Number: JP-ASTRAZENECA-2007AP04185

PATIENT
  Age: 792 Month
  Sex: Female

DRUGS (4)
  1. ARIMIDEX [Suspect]
     Indication: BREAST CANCER
     Route: 048
     Dates: start: 20060401
  2. ALCENOL [Concomitant]
     Route: 048
  3. CORINAEL CR [Concomitant]
     Route: 048
  4. ACTONEL [Concomitant]
     Route: 048

REACTIONS (1)
  - TREMOR [None]
